FAERS Safety Report 13503681 (Version 1)
Quarter: 2017Q2

REPORT INFORMATION
  Report Type: Spontaneous
  Country: MX (occurrence: MX)
  Receive Date: 20170502
  Receipt Date: 20170502
  Transmission Date: 20170830
  Serious: Yes (Death)
  Sender: FDA-Public Use
  Company Number: MX-PFIZER INC-2017188042

PATIENT
  Age: 79 Year
  Sex: Female

DRUGS (3)
  1. PREGABALIN. [Suspect]
     Active Substance: PREGABALIN
     Dosage: UNKNOWN DOSE
  2. CELEBREX [Suspect]
     Active Substance: CELECOXIB
     Dosage: UNKNOWN DOSE
  3. SERMION [Suspect]
     Active Substance: NICERGOLINE
     Dosage: UNKNOWN DOSE

REACTIONS (1)
  - Haemorrhage [Fatal]

NARRATIVE: CASE EVENT DATE: 20170123
